FAERS Safety Report 11009317 (Version 1)
Quarter: 2015Q2

REPORT INFORMATION
  Report Type: Spontaneous
  Country: US (occurrence: None)
  Receive Date: 20150409
  Receipt Date: 20150409
  Transmission Date: 20150821
  Serious: Yes (Hospitalization)
  Sender: FDA-Public Use
  Company Number: None

PATIENT
  Age: 66 Year
  Sex: Male
  Weight: 127.01 kg

DRUGS (1)
  1. TORSEMIDE. [Suspect]
     Active Substance: TORSEMIDE
     Indication: OEDEMA
     Dosage: 2 ONCE DAILY TAKEN BY MOUTH
     Route: 048
     Dates: start: 20150329, end: 20150329

REACTIONS (7)
  - Chest discomfort [None]
  - Infection [None]
  - Weight decreased [None]
  - Muscle spasms [None]
  - Feeling abnormal [None]
  - Blood potassium decreased [None]
  - Faeces discoloured [None]

NARRATIVE: CASE EVENT DATE: 20150329
